FAERS Safety Report 5299971-3 (Version None)
Quarter: 2007Q2

REPORT INFORMATION
  Report Type: 
  Country: None (occurrence: None)
  Receive Date: 20070410
  Receipt Date: 20070404
  Transmission Date: 20071010
  Serious: Yes (Hospitalization)
  Sender: FDA-Public Use
  Company Number: B0465244A

PATIENT
  Age: 84 Year
  Sex: Female

DRUGS (2)
  1. AMOXICILLIN [Suspect]
     Indication: URINARY TRACT INFECTION
     Dosage: UNK / UNK / INTRAVENOUS
     Route: 042
     Dates: start: 20070302, end: 20070305
  2. AMOXIL [Suspect]
     Indication: URINARY TRACT INFECTION
     Dosage: UNK / UNK / ORAL
     Route: 048
     Dates: start: 20070305, end: 20070309

REACTIONS (1)
  - NEUTROPENIA [None]
